FAERS Safety Report 24165420 (Version 2)
Quarter: 2024Q3

REPORT INFORMATION
  Report Type: Report from Study
  Country: CA (occurrence: CA)
  Receive Date: 20240802
  Receipt Date: 20240906
  Transmission Date: 20241017
  Serious: Yes (Hospitalization)
  Sender: JOHNSON AND JOHNSON
  Company Number: CA-JNJFOC-20240771811

PATIENT
  Age: 66 Year
  Sex: Female
  Weight: 53 kg

DRUGS (8)
  1. STELARA [Suspect]
     Active Substance: USTEKINUMAB
     Indication: Crohn^s disease
     Route: 058
     Dates: start: 20201210
  2. STELARA [Suspect]
     Active Substance: USTEKINUMAB
     Dosage: ON 28-AUG-2024, THE PATIENT RECEIVED 37TH INJECTION OF USTEKINUMAB AT A DOSE OF 90 MG.
     Route: 058
     Dates: start: 20201210
  3. AMITRIPTYLINE [Concomitant]
     Active Substance: AMITRIPTYLINE
  4. VITAMIN B12 [Concomitant]
     Active Substance: CYANOCOBALAMIN
  5. COLACE [Concomitant]
     Active Substance: DOCUSATE SODIUM
  6. MESALAMINE [Concomitant]
     Active Substance: MESALAMINE
  7. CALCIUM [Concomitant]
     Active Substance: CALCIUM
  8. PEPCID [Concomitant]
     Active Substance: FAMOTIDINE

REACTIONS (2)
  - Haematochezia [Not Recovered/Not Resolved]
  - Large intestinal ulcer [Not Recovered/Not Resolved]

NARRATIVE: CASE EVENT DATE: 20240716
